FAERS Safety Report 11908322 (Version 1)
Quarter: 2016Q1

REPORT INFORMATION
  Report Type: Spontaneous
  Country: US (occurrence: US)
  Receive Date: 20160111
  Receipt Date: 20160111
  Transmission Date: 20160526
  Serious: Yes (Other)
  Sender: FDA-Public Use
  Company Number: US-APOTEX-2016AP005202

PATIENT
  Sex: Female

DRUGS (1)
  1. PAXIL [Suspect]
     Active Substance: PAROXETINE HYDROCHLORIDE
     Indication: MENOPAUSAL DEPRESSION
     Dosage: UNK
     Route: 065
     Dates: start: 2006

REACTIONS (6)
  - Balance disorder [Unknown]
  - Disturbance in attention [Unknown]
  - Confusional state [Unknown]
  - Insomnia [Unknown]
  - Drug dependence [Unknown]
  - Withdrawal syndrome [Unknown]
